FAERS Safety Report 4337728-8 (Version None)
Quarter: 2004Q2

REPORT INFORMATION
  Report Type: 
  Country: None (occurrence: None)
  Receive Date: 20040409
  Receipt Date: 20040323
  Transmission Date: 20050107
  Serious: Yes (Hospitalization)
  Sender: FDA-Public Use
  Company Number: WAES 0403USA02322

PATIENT
  Age: 35 Year
  Sex: Female

DRUGS (21)
  1. CRIXIVAN [Suspect]
     Indication: HIV INFECTION
     Dosage: SEE IMAGE
     Route: 048
     Dates: start: 19980831, end: 19980909
  2. CRIXIVAN [Suspect]
     Indication: HIV INFECTION
     Dosage: SEE IMAGE
     Route: 048
     Dates: start: 20000310, end: 20001027
  3. CAP STOCRIN (EFAVIRENZ) [Suspect]
     Indication: HIV INFECTION
     Dosage: 600 MG/DAILY PO
     Route: 048
     Dates: start: 20000310, end: 20001027
  4. CAP STOCRIN (EFAVIRENZ) [Suspect]
     Indication: HIV INFECTION
     Dosage: 600 MG/DAILY PO
     Route: 048
     Dates: start: 20010130
  5. CAP RITONAVIR [Suspect]
     Indication: HIV INFECTION
     Dosage: 400 MG/DAILY PO
     Route: 048
     Dates: start: 20000310, end: 20001027
  6. TAB ABACAVIR SULFATE [Suspect]
     Indication: HIV INFECTION
     Dosage: 600 MG/DAILY PO
     Route: 048
     Dates: start: 20010130
  7. CAP LOPINAVIR (+) RITONAVIR [Suspect]
     Indication: HIV INFECTION
     Dosage: 6 CPASULE/DAILY PO
     Route: 048
     Dates: start: 20010130
  8. CAP CLARITHROMYCIN [Suspect]
     Indication: GENERAL SYMPTOM
     Dosage: 800 MG/DAILY PO
     Route: 048
     Dates: start: 20001028
  9. ETHAMBUTOL HCL [Suspect]
     Indication: GENERAL SYMPTOM
     Dosage: 500 MG/DAILY PO
     Route: 048
     Dates: start: 20001028, end: 20011130
  10. SULFAMETHOXAZOLE + TRIMETHOPRIM [Suspect]
     Indication: PROPHYLAXIS
     Dosage: 1 TABLET/DAILY PO
     Route: 048
     Dates: start: 20010113, end: 20020319
  11. CIPROFLOXACIN HYDROCHLORIDE [Concomitant]
  12. DEXTROSE [Concomitant]
  13. HYDROCORTISONE [Concomitant]
  14. HYDROCORTISONE SODIUM PHOSPHATE [Concomitant]
  15. HYDROXYZINE HYDROCHLORIDE [Concomitant]
  16. LAMIVUDINE [Concomitant]
  17. MORPHINE [Concomitant]
  18. PREDNISOLONE [Concomitant]
  19. RIFAMPIN [Concomitant]
  20. ROXITHROMYCIN [Concomitant]
  21. ZIDOVUDINE [Concomitant]

REACTIONS (10)
  - ANOREXIA [None]
  - BLOOD ALKALINE PHOSPHATASE INCREASED [None]
  - CALCULUS URINARY [None]
  - DEHYDRATION [None]
  - DIZZINESS [None]
  - GAMMA-GLUTAMYLTRANSFERASE INCREASED [None]
  - HIV WASTING SYNDROME [None]
  - HYPERLIPIDAEMIA [None]
  - NAUSEA [None]
  - VOMITING [None]
